FAERS Safety Report 6211526-2 (Version None)
Quarter: 2009Q2

REPORT INFORMATION
  Report Type: 
  Country: None (occurrence: None)
  Receive Date: 20090602
  Receipt Date: 20090518
  Transmission Date: 20091009
  Serious: Yes (Hospitalization)
  Sender: FDA-Public Use
  Company Number: US-JNJFOC-20090504436

PATIENT
  Sex: Female
  Weight: 128.37 kg

DRUGS (18)
  1. TYLENOL (CAPLET) [Suspect]
  2. TYLENOL (CAPLET) [Suspect]
     Indication: ANALGESIA
  3. COUMADIN [Suspect]
     Indication: DEEP VEIN THROMBOSIS
  4. PREDNISONE [Suspect]
     Indication: CHRONIC OBSTRUCTIVE PULMONARY DISEASE
  5. COZAAR [Suspect]
     Indication: HYPERTENSION
  6. LASIX [Suspect]
     Indication: HYPERTENSION
  7. PROVENTIL GENTLEHALER [Suspect]
     Indication: CHRONIC OBSTRUCTIVE PULMONARY DISEASE
  8. HEPARIN [Concomitant]
     Indication: DEEP VEIN THROMBOSIS
  9. INSULIN (NOVOLIN B) [Concomitant]
     Indication: BLOOD GLUCOSE FLUCTUATION
  10. PRO-VENT [Concomitant]
     Indication: CHRONIC OBSTRUCTIVE PULMONARY DISEASE
  11. LOPRESSOR [Concomitant]
     Indication: HYPERTENSION
  12. SOLU-MEDROL [Concomitant]
     Indication: CHRONIC OBSTRUCTIVE PULMONARY DISEASE
  13. DIFLUCAN [Concomitant]
     Indication: ANTIFUNGAL PROPHYLAXIS
  14. SPIRIVA [Concomitant]
     Indication: CHRONIC OBSTRUCTIVE PULMONARY DISEASE
  15. MORPHINE [Concomitant]
     Indication: ANALGESIA
  16. HEPARIN [Concomitant]
  17. ALBUTEROL [Concomitant]
     Indication: ASTHMA
  18. VICODIN [Concomitant]
     Indication: ANALGESIA

REACTIONS (3)
  - HAEMATOMA [None]
  - INJECTION SITE EXTRAVASATION [None]
  - INJECTION SITE HAEMATOMA [None]
